FAERS Safety Report 8401824-6 (Version None)
Quarter: 2012Q2

REPORT INFORMATION
  Report Type: 
  Country: None (occurrence: None)
  Receive Date: 20120529
  Receipt Date: 20101102
  Transmission Date: 20120825
  Serious: Yes (Hospitalization, Other)
  Sender: FDA-Public Use
  Company Number: 004792

PATIENT
  Age: 78 Year
  Sex: Male

DRUGS (3)
  1. NITRODERAM TTS (NITROGLYCERIN) [Concomitant]
  2. PLETAL [Suspect]
     Indication: PERIPHERAL ARTERIAL OCCLUSIVE DISEASE
     Dosage: 50 MG, BID, ORAL
     Route: 048
     Dates: start: 20080109, end: 20080928
  3. FERROUS CITRATE [Concomitant]

REACTIONS (3)
  - HEAD INJURY [None]
  - FALL [None]
  - EXTRADURAL HAEMATOMA [None]
